FAERS Safety Report 11562270 (Version 1)
Quarter: 2015Q3

REPORT INFORMATION
  Report Type: Spontaneous
  Country: US (occurrence: US)
  Receive Date: 20150928
  Receipt Date: 20150928
  Transmission Date: 20151125
  Serious: Yes (Death)
  Sender: FDA-Public Use
  Company Number: US-BRISTOL-MYERS SQUIBB COMPANY-BMS-2015-064105

PATIENT
  Sex: Male

DRUGS (1)
  1. OPDIVO [Suspect]
     Active Substance: NIVOLUMAB
     Indication: TONGUE NEOPLASM MALIGNANT STAGE UNSPECIFIED
     Dosage: 195 MG, Q2WK
     Route: 065

REACTIONS (2)
  - Off label use [Unknown]
  - Death [Fatal]
